FAERS Safety Report 17223518 (Version 1)
Quarter: 2020Q1

REPORT INFORMATION
  Report Type: Spontaneous
  Country: US (occurrence: US)
  Receive Date: 20200102
  Receipt Date: 20200102
  Transmission Date: 20200409
  Serious: Yes (Other)
  Sender: FDA-Public Use
  Company Number: US-LUPIN PHARMACEUTICALS INC.-2019-08797

PATIENT
  Sex: Male

DRUGS (10)
  1. DIAZEPAM. [Suspect]
     Active Substance: DIAZEPAM
     Indication: ANXIETY
     Dosage: UNK, HEFTY DOSES
     Route: 065
  2. CLONAZEPAM. [Suspect]
     Active Substance: CLONAZEPAM
     Indication: AGGRESSION
  3. CLONAZEPAM. [Suspect]
     Active Substance: CLONAZEPAM
     Indication: ANXIETY
  4. ZIPRASIDONE. [Suspect]
     Active Substance: ZIPRASIDONE
     Indication: ANXIETY
  5. LAMOTRIGINE. [Suspect]
     Active Substance: LAMOTRIGINE
     Indication: MOOD ALTERED
     Dosage: UNK, HEFTY DOSES
     Route: 065
  6. VENLAFAXINE [Suspect]
     Active Substance: VENLAFAXINE HYDROCHLORIDE
     Indication: DEPRESSION
     Dosage: UNK, HEFTY DOSES
     Route: 065
  7. VENLAFAXINE [Suspect]
     Active Substance: VENLAFAXINE HYDROCHLORIDE
     Dosage: UNK, DOSE DECREASED
     Route: 065
  8. DIAZEPAM. [Suspect]
     Active Substance: DIAZEPAM
     Indication: AGGRESSION
  9. ZIPRASIDONE. [Suspect]
     Active Substance: ZIPRASIDONE
     Indication: AGGRESSION
     Dosage: UNK, HEFTY DOSES
     Route: 065
  10. CLONAZEPAM. [Suspect]
     Active Substance: CLONAZEPAM
     Indication: MOOD ALTERED
     Dosage: UNK, HEFTY DOSES
     Route: 065

REACTIONS (4)
  - Weight increased [Recovering/Resolving]
  - Anger [Recovering/Resolving]
  - Blunted affect [Recovering/Resolving]
  - Gastrointestinal disorder [Recovering/Resolving]
